FAERS Safety Report 25872213 (Version 1)
Quarter: 2025Q4

REPORT INFORMATION
  Report Type: Spontaneous
  Country: EU (occurrence: EU)
  Receive Date: 20251002
  Receipt Date: 20251002
  Transmission Date: 20260117
  Serious: Yes (Death, Other)
  Sender: AMGEN
  Company Number: EU-AMGEN-ESPSP2025194798

PATIENT

DRUGS (5)
  1. ETANERCEPT [Suspect]
     Active Substance: ETANERCEPT
     Indication: Acute graft versus host disease
     Dosage: 25 MILLIGRAM, 2 TIMES/WK
     Route: 058
  2. ETANERCEPT [Suspect]
     Active Substance: ETANERCEPT
     Indication: Chronic graft versus host disease
  3. ETANERCEPT [Suspect]
     Active Substance: ETANERCEPT
     Indication: Off label use
  4. INOLIMOMAB [Suspect]
     Active Substance: INOLIMOMAB
     Indication: Acute graft versus host disease
     Dosage: 11 MG/DAY FOR 3 DAYS, 5.5 MG/DAY FOR 7 DAYS, AND 5.5 MG EVERY OTHER DAY FOR FIVE DOSES
     Route: 040
  5. INOLIMOMAB [Suspect]
     Active Substance: INOLIMOMAB
     Indication: Chronic graft versus host disease

REACTIONS (17)
  - Acute graft versus host disease [Fatal]
  - Systemic mycosis [Fatal]
  - Bacterial infection [Fatal]
  - Chronic graft versus host disease [Fatal]
  - Enterococcal infection [Unknown]
  - Pseudomonas infection [Unknown]
  - Clostridium difficile colitis [Unknown]
  - Viral haemorrhagic cystitis [Unknown]
  - Pneumonia [Unknown]
  - Bacterial sepsis [Unknown]
  - Cytomegalovirus infection [Unknown]
  - Epstein-Barr virus infection [Unknown]
  - Herpes simplex [Unknown]
  - Varicella zoster virus infection [Unknown]
  - Infection [Unknown]
  - Escherichia infection [Unknown]
  - Off label use [Unknown]
